FAERS Safety Report 4788319-6 (Version None)
Quarter: 2005Q4

REPORT INFORMATION
  Report Type: 
  Country: None (occurrence: None)
  Receive Date: 20051003
  Receipt Date: 20050920
  Transmission Date: 20060501
  Serious: Yes (Other)
  Sender: FDA-Public Use
  Company Number: 2005131883

PATIENT
  Age: 49 Year
  Sex: Female
  Weight: 60.782 kg

DRUGS (4)
  1. NORVASC [Suspect]
     Indication: HYPERTENSION
     Dosage: 5 MG (5 MG, 1 IN 1 D)
  2. TRAZODONE HCL [Concomitant]
  3. INDOMETHACIN [Concomitant]
  4. CARISOPRODOL [Concomitant]

REACTIONS (5)
  - ABORTION SPONTANEOUS [None]
  - DRUG EXPOSURE DURING PREGNANCY [None]
  - DRY MOUTH [None]
  - SOMNOLENCE [None]
  - STRESS [None]
